FAERS Safety Report 16046557 (Version 2)
Quarter: 2019Q2

REPORT INFORMATION
  Report Type: Spontaneous
  Country: US (occurrence: US)
  Receive Date: 20190307
  Receipt Date: 20190416
  Transmission Date: 20190711
  Serious: No
  Sender: FDA-Public Use
  Company Number: US-VERTEX PHARMACEUTICALS-2019-001976

PATIENT
  Age: 36 Year
  Sex: Female

DRUGS (25)
  1. LEVALBUTEROL                       /01419301/ [Concomitant]
     Active Substance: LEVALBUTEROL
  2. PULMOZYME [Concomitant]
     Active Substance: DORNASE ALFA
  3. FLUCONAZOLE. [Concomitant]
     Active Substance: FLUCONAZOLE
  4. METHYLPRED [Concomitant]
     Active Substance: METHYLPREDNISOLONE
  5. KALYDECO [Suspect]
     Active Substance: IVACAFTOR
     Indication: CYSTIC FIBROSIS
     Dosage: 150 MG, BID
     Route: 048
     Dates: start: 20140107
  6. ZENPEP [Concomitant]
     Active Substance: PANCRELIPASE AMYLASE\PANCRELIPASE LIPASE\PANCRELIPASE PROTEASE
  7. ONDANSETRON [Concomitant]
     Active Substance: ONDANSETRON
  8. CYCLOBENZAPRIN [Concomitant]
     Active Substance: CYCLOBENZAPRINE
  9. MIRTAZAPINE. [Concomitant]
     Active Substance: MIRTAZAPINE
  10. ZOVIRAX [Concomitant]
     Active Substance: ACYCLOVIR
  11. AZITHROMYCIN ANHYDROUS. [Concomitant]
     Active Substance: AZITHROMYCIN ANHYDROUS
  12. HYDROXYZINE HYDROCHLORIDE. [Concomitant]
     Active Substance: HYDROXYZINE HYDROCHLORIDE
  13. ESOMEPRAZOL MAGNESIO [Concomitant]
  14. OXYCODONE [Concomitant]
     Active Substance: OXYCODONE
  15. CIPRO [Concomitant]
     Active Substance: CIPROFLOXACIN HYDROCHLORIDE
  16. AMOXICILLIN AND CLAVULA. POTASSIUM /01000301/ [Concomitant]
     Active Substance: AMOXICILLIN\CLAVULANATE POTASSIUM
  17. METRONIDAZOLE. [Concomitant]
     Active Substance: METRONIDAZOLE
  18. BUPROPION. [Concomitant]
     Active Substance: BUPROPION
  19. PREDNISONE. [Concomitant]
     Active Substance: PREDNISONE
  20. PROMETHAZINE [Concomitant]
     Active Substance: PROMETHAZINE\PROMETHAZINE HYDROCHLORIDE
  21. BREO ELLIPTA [Concomitant]
     Active Substance: FLUTICASONE FUROATE\VILANTEROL TRIFENATATE
  22. SODIUM CHLORIDE. [Concomitant]
     Active Substance: SODIUM CHLORIDE
  23. OGESTREL-28 [Concomitant]
  24. TOBRAMYCIN. [Concomitant]
     Active Substance: TOBRAMYCIN
  25. COLISTIMETHATE                     /00013204/ [Concomitant]
     Active Substance: COLISTIMETHATE SODIUM

REACTIONS (2)
  - Intestinal obstruction [Recovered/Resolved]
  - Diarrhoea [Recovered/Resolved]

NARRATIVE: CASE EVENT DATE: 20181222
